FAERS Safety Report 9617532 (Version 1)
Quarter: 2013Q4

REPORT INFORMATION
  Report Type: Spontaneous
  Country: CN (occurrence: CN)
  Receive Date: 20131011
  Receipt Date: 20131011
  Transmission Date: 20140711
  Serious: Yes (Other)
  Sender: FDA-Public Use
  Company Number: CN-GLAXOSMITHKLINE-B0928528A

PATIENT
  Age: 68 Year
  Sex: Male
  Weight: 65 kg

DRUGS (1)
  1. SALMETEROL XINAFOATE + FLUTICASONE PROPIONATE [Suspect]
     Indication: BRONCHITIS
     Dosage: 200UG TWICE PER DAY
     Route: 055
     Dates: start: 20120506, end: 20120506

REACTIONS (2)
  - Measles [Recovering/Resolving]
  - Pruritus allergic [Recovering/Resolving]
